FAERS Safety Report 7964760 (Version 3)
Quarter: 2012Q4

REPORT INFORMATION
  Report Type: 
  Country: FR (occurrence: FR)
  Receive Date: 20110527
  Receipt Date: 20121217
  Transmission Date: 20130627
  Serious: Yes (Hospitalization)
  Sender: FDA-Public Use
  Company Number: FR-MERCK-1105USA03439

PATIENT
  Age: 33 Year
  Sex: Female

DRUGS (5)
  1. JANUVIA [Suspect]
     Dosage: 100 mg, qd
     Route: 048
     Dates: start: 20100917, end: 20100923
  2. JANUMET [Suspect]
     Dosage: 50mg/1000
     Route: 048
     Dates: start: 20100924, end: 20110408
  3. GLUCOPHAGE [Suspect]
     Dosage: 1000 mg, bid
     Route: 048
     Dates: end: 20100924
  4. LUDEAL [Concomitant]
     Dosage: 1 DF, qd
     Route: 048
  5. ACETAMINOPHEN [Concomitant]
     Dosage: UNK UNK, PRN

REACTIONS (3)
  - Haemolytic anaemia [Not Recovered/Not Resolved]
  - Thrombotic microangiopathy [Not Recovered/Not Resolved]
  - Thrombotic thrombocytopenic purpura [Not Recovered/Not Resolved]
